FAERS Safety Report 13606127 (Version 1)
Quarter: 2017Q2

REPORT INFORMATION
  Report Type: Spontaneous
  Country: US (occurrence: US)
  Receive Date: 20170602
  Receipt Date: 20170602
  Transmission Date: 20170830
  Serious: Yes (Hospitalization)
  Sender: FDA-Public Use
  Company Number: None

PATIENT
  Age: 73 Year
  Sex: Male
  Weight: 84.2 kg

DRUGS (1)
  1. TEMOZOLOMIDE. [Suspect]
     Active Substance: TEMOZOLOMIDE
     Dates: end: 20170519

REACTIONS (6)
  - Asthenia [None]
  - Fatigue [None]
  - Nausea [None]
  - Retching [None]
  - Hypophagia [None]
  - Vomiting [None]

NARRATIVE: CASE EVENT DATE: 20170524
